FAERS Safety Report 8928053 (Version 1)
Quarter: 2012Q4

REPORT INFORMATION
  Report Type: Spontaneous
  Country: US (occurrence: None)
  Receive Date: 20121120
  Receipt Date: 20121120
  Transmission Date: 20130627
  Serious: Yes (Hospitalization)
  Sender: FDA-Public Use
  Company Number: 2012P1063794

PATIENT
  Age: 65 Year
  Sex: Female

DRUGS (2)
  1. DONEPEZIL [Suspect]
  2. CLOPIDOGREL [Concomitant]

REACTIONS (6)
  - Mania [None]
  - Insomnia [None]
  - Agitation [None]
  - Encephalomalacia [None]
  - Speech disorder [None]
  - Abnormal behaviour [None]
